FAERS Safety Report 17434775 (Version 4)
Quarter: 2020Q2

REPORT INFORMATION
  Report Type: Report from Study
  Country: MX (occurrence: MX)
  Receive Date: 20200219
  Receipt Date: 20200608
  Transmission Date: 20200713
  Serious: Yes (Other)
  Sender: FDA-Public Use
  Company Number: NVSC2020MX042743

PATIENT
  Sex: Female
  Weight: 47 kg

DRUGS (1)
  1. DIOVAN [Suspect]
     Active Substance: VALSARTAN
     Indication: HYPERTENSION
     Dosage: 1 DF, QD
     Route: 048
     Dates: start: 201912

REACTIONS (13)
  - Abdominal discomfort [Unknown]
  - Paronychia [Recovered/Resolved]
  - Anxiety [Unknown]
  - Palpitations [Unknown]
  - Lacrimation increased [Unknown]
  - Limb discomfort [Unknown]
  - Fear [Unknown]
  - Headache [Not Recovered/Not Resolved]
  - Feeling abnormal [Unknown]
  - Discharge [Recovered/Resolved]
  - Syncope [Unknown]
  - Gait inability [Recovered/Resolved]
  - Diarrhoea [Unknown]
